FAERS Safety Report 6241450-0 (Version None)
Quarter: 2009Q2

REPORT INFORMATION
  Report Type: 
  Country: None (occurrence: None)
  Receive Date: 20090623
  Receipt Date: 20090619
  Transmission Date: 20091009
  Serious: No
  Sender: FDA-Public Use
  Company Number: US-JNJFOC-20090607658

PATIENT
  Sex: Male
  Weight: 108.86 kg

DRUGS (5)
  1. INVEGA [Suspect]
     Indication: SCHIZOAFFECTIVE DISORDER
     Route: 048
  2. CELEXA [Concomitant]
     Indication: DEPRESSION
     Route: 048
  3. UNKNOWN MEDICATION [Concomitant]
     Indication: DRUG THERAPY
     Route: 048
  4. SIMVASTATIN [Concomitant]
     Indication: BLOOD CHOLESTEROL INCREASED
  5. ATENOLOL [Concomitant]
     Indication: TACHYCARDIA

REACTIONS (1)
  - HALLUCINATION [None]
